FAERS Safety Report 8783272 (Version 1)
Quarter: 2012Q4

REPORT INFORMATION
  Report Type: 
  Country: US (occurrence: US)
  Receive Date: 20120913
  Receipt Date: 20120913
  Transmission Date: 20130627
  Serious: Yes (Congenital Anomaly)
  Sender: FDA-Public Use
  Company Number: US-JNJFOC-20120904661

PATIENT

DRUGS (1)
  1. TOPAMAX [Suspect]
     Indication: FOETAL EXPOSURE DURING PREGNANCY
     Route: 064
     Dates: start: 20050423, end: 20050615

REACTIONS (5)
  - Premature baby [Not Recovered/Not Resolved]
  - Cleft palate [Unknown]
  - Haemangioma [Unknown]
  - Hearing impaired [Unknown]
  - Speech disorder developmental [Unknown]
